FAERS Safety Report 24223878 (Version 1)
Quarter: 2024Q3

REPORT INFORMATION
  Report Type: Spontaneous
  Country: US (occurrence: None)
  Receive Date: 20240819
  Receipt Date: 20240819
  Transmission Date: 20241017
  Serious: No
  Sender: Public
  Company Number: None

PATIENT
  Age: 65 Year
  Sex: Male

DRUGS (1)
  1. ADBRY [Suspect]
     Active Substance: TRALOKINUMAB-LDRM
     Indication: Dermatitis atopic
     Dosage: OTHER QUANTITY : 300MG (TWO-150 INJECTIONS);?FREQUENCY : EVERY OTHER WEEK;?
     Route: 058

REACTIONS (3)
  - Fall [None]
  - Foot fracture [None]
  - Foot fracture [None]

NARRATIVE: CASE EVENT DATE: 20240815
